FAERS Safety Report 23052949 (Version 1)
Quarter: 2023Q4

REPORT INFORMATION
  Report Type: Spontaneous
  Country: US (occurrence: US)
  Receive Date: 20231011
  Receipt Date: 20231011
  Transmission Date: 20240110
  Serious: No
  Sender: FDA-Public Use
  Company Number: US-CADILA HEALTHCARE LIMITED-US-ZYDUS-095303

PATIENT

DRUGS (1)
  1. LENALIDOMIDE [Suspect]
     Active Substance: LENALIDOMIDE
     Indication: Plasma cell myeloma
     Dosage: 1 TIME A DAY FOR 7 DAYS ON THEN 7 DAYS OFF
     Route: 048
     Dates: start: 202303

REACTIONS (1)
  - Mania [Unknown]

NARRATIVE: CASE EVENT DATE: 20230101
